FAERS Safety Report 11597704 (Version 1)
Quarter: 2015Q4

REPORT INFORMATION
  Report Type: Spontaneous
  Country: US (occurrence: US)
  Receive Date: 20151006
  Receipt Date: 20151006
  Transmission Date: 20160304
  Serious: No
  Sender: FDA-Public Use
  Company Number: US-AMGEN-USASP2015087325

PATIENT
  Age: 71 Year
  Sex: Female
  Weight: 59.64 kg

DRUGS (13)
  1. PHENAZOPYRIDINE. [Concomitant]
     Active Substance: PHENAZOPYRIDINE
     Dosage: 200 MG, 3 TIMES IN A DAY AFTER MEAL AS NECESSARY
     Route: 048
     Dates: start: 20150713
  2. XGEVA [Suspect]
     Active Substance: DENOSUMAB
     Indication: PRODUCT USED FOR UNKNOWN INDICATION
     Dosage: 120 MG, UNK
     Route: 065
     Dates: start: 2012
  3. AFINITOR [Concomitant]
     Active Substance: EVEROLIMUS
     Dosage: 10 MG, QOD ORAL TABLET
     Route: 048
     Dates: start: 20140715
  4. BUSPIRONE [Concomitant]
     Active Substance: BUSPIRONE HYDROCHLORIDE
     Dosage: 30 MG, TID
     Route: 048
  5. ELMIRON [Concomitant]
     Active Substance: PENTOSAN POLYSULFATE SODIUM
     Dosage: 100 MG, TID, 1 HOUR BEFORE OR 2 HOURS AFTER A MEAL
     Route: 048
     Dates: start: 20150224
  6. LUNESTA [Concomitant]
     Active Substance: ESZOPICLONE
     Dosage: 2 MG, 2 TABLETS, QHS
     Route: 048
  7. CYCLOBENZAPRINE [Concomitant]
     Active Substance: CYCLOBENZAPRINE
     Dosage: 10 MG, UNK
     Route: 048
  8. EXEMESTANE. [Concomitant]
     Active Substance: EXEMESTANE
     Dosage: 25 MG, QD, AFTER MEAL
     Route: 048
     Dates: start: 20150316
  9. MACROBID [Concomitant]
     Active Substance: NITROFURANTOIN\NITROFURANTOIN MONOHYDRATE
     Indication: PROPHYLAXIS URINARY TRACT INFECTION
     Dosage: 100 MG, QD
     Route: 048
     Dates: start: 20150713
  10. ROPINIROLE. [Concomitant]
     Active Substance: ROPINIROLE
     Dosage: 4 MG, QHS
     Route: 048
  11. XANAX [Concomitant]
     Active Substance: ALPRAZOLAM
     Dosage: 0.5 MG, AS NECESSARY
     Route: 048
  12. KLOR-CON [Concomitant]
     Active Substance: POTASSIUM CHLORIDE
     Dosage: UNK, 1 PACKET (20 MEQ)
     Route: 048
     Dates: start: 20141215
  13. MOBIC [Concomitant]
     Active Substance: MELOXICAM
     Dosage: 15 MG, BID
     Route: 048

REACTIONS (3)
  - Drug dose omission [Unknown]
  - Tooth disorder [Unknown]
  - Tooth infection [Unknown]
